FAERS Safety Report 9014735 (Version 1)
Quarter: 2013Q1

REPORT INFORMATION
  Report Type: Spontaneous
  Country: DE (occurrence: DE)
  Receive Date: 20130115
  Receipt Date: 20130115
  Transmission Date: 20140127
  Serious: Yes (Other)
  Sender: FDA-Public Use
  Company Number: DE-PFIZER INC-2012217101

PATIENT
  Age: 82 Year
  Sex: Female

DRUGS (4)
  1. RAMILICH [Suspect]
     Indication: PRODUCT USED FOR UNKNOWN INDICATION
     Dosage: 5 MG, TWICE DAILY
     Route: 048
     Dates: start: 201110, end: 20120612
  2. RAMI-Q [Suspect]
     Indication: PRODUCT USED FOR UNKNOWN INDICATION
     Dosage: 5 MG, TWICE DAILY
     Route: 048
     Dates: start: 20120613, end: 20120706
  3. SIMVASTATIN [Concomitant]
     Dosage: UNK
  4. ACETYLSALICYLIC ACID [Concomitant]
     Dosage: UNK

REACTIONS (4)
  - Photosensitivity reaction [Recovering/Resolving]
  - Drug eruption [Recovering/Resolving]
  - Photosensitivity reaction [None]
  - Product quality issue [None]
